FAERS Safety Report 23370547 (Version 1)
Quarter: 2024Q1

REPORT INFORMATION
  Report Type: Spontaneous
  Country: US (occurrence: US)
  Receive Date: 20240105
  Receipt Date: 20240105
  Transmission Date: 20240410
  Serious: No
  Sender: FDA-Public Use
  Company Number: US-SA-SAC20240102000060

PATIENT
  Sex: Female

DRUGS (1)
  1. DUPIXENT [Suspect]
     Active Substance: DUPILUMAB
     Indication: Dermatitis atopic
     Dosage: 200 MG, QM
     Route: 058

REACTIONS (4)
  - Periorbital swelling [Unknown]
  - Sleep disorder [Unknown]
  - Ocular hyperaemia [Unknown]
  - Inappropriate schedule of product administration [Unknown]
